FAERS Safety Report 7805561-8 (Version None)
Quarter: 2011Q4

REPORT INFORMATION
  Report Type: 
  Country: None (occurrence: None)
  Receive Date: 20111010
  Receipt Date: 20111006
  Transmission Date: 20120403
  Serious: Yes (Life-Threatening, Hospitalization, Other)
  Sender: FDA-Public Use
  Company Number: US-MERCK-1107USA02557

PATIENT
  Age: 45 Year
  Sex: Male
  Weight: 118 kg

DRUGS (1)
  1. JANUVIA [Suspect]
     Indication: TYPE 2 DIABETES MELLITUS
     Route: 048

REACTIONS (3)
  - PANCREATITIS [None]
  - DEHYDRATION [None]
  - HYPERGLYCAEMIA [None]
